FAERS Safety Report 5754636-6 (Version None)
Quarter: 2008Q2

REPORT INFORMATION
  Report Type: 
  Country: None (occurrence: None)
  Receive Date: 20080530
  Receipt Date: 20080520
  Transmission Date: 20081010
  Serious: Yes (Other)
  Sender: FDA-Public Use
  Company Number: US-PFIZER INC-2008043628

PATIENT
  Sex: Female
  Weight: 76.7 kg

DRUGS (1)
  1. LYRICA [Suspect]
     Indication: FIBROMYALGIA

REACTIONS (4)
  - ILL-DEFINED DISORDER [None]
  - JAUNDICE CHOLESTATIC [None]
  - NAUSEA [None]
  - WEIGHT DECREASED [None]
